FAERS Safety Report 4285376-0 (Version None)
Quarter: 2004Q1

REPORT INFORMATION
  Report Type: 
  Country: None (occurrence: None)
  Receive Date: 20040202
  Receipt Date: 20040123
  Transmission Date: 20041129
  Serious: Yes (Hospitalization)
  Sender: FDA-Public Use
  Company Number: UK064717

PATIENT
  Age: 67 Year
  Sex: Male

DRUGS (3)
  1. KINERET [Suspect]
     Indication: RHEUMATOID ARTHRITIS
     Dates: start: 20020701, end: 20021101
  2. METHOTREXATE [Suspect]
  3. LEFLUNOMIDE [Suspect]

REACTIONS (1)
  - PULMONARY TUBERCULOSIS [None]
